FAERS Safety Report 9419355 (Version 1)
Quarter: 2013Q3

REPORT INFORMATION
  Report Type: Spontaneous
  Country: US (occurrence: None)
  Receive Date: 20130724
  Receipt Date: 20130724
  Transmission Date: 20140515
  Serious: Yes (Death)
  Sender: FDA-Public Use
  Company Number: None

PATIENT
  Age: 60 Year
  Sex: Male

DRUGS (2)
  1. FACTOR IX HUMAN COMPLEX [Suspect]
     Indication: INTERNATIONAL NORMALISED RATIO ABNORMAL
     Dosage: 3000 UNITS + 2500 UNITS ONCE EACH IV BOLUS
     Dates: start: 20130404, end: 20130404
  2. HEPARIN [Suspect]
     Indication: CARDIOPULMONARY BYPASS
     Dosage: 30,000 UNITS ONCE OTHER
     Dates: start: 20130404, end: 20130404

REACTIONS (2)
  - Hypotension [None]
  - Intracardiac thrombus [None]
